FAERS Safety Report 21727974 (Version 3)
Quarter: 2023Q1

REPORT INFORMATION
  Report Type: Spontaneous
  Country: US (occurrence: US)
  Receive Date: 20221214
  Receipt Date: 20230314
  Transmission Date: 20230417
  Serious: No
  Sender: FDA-Public Use
  Company Number: US-Dermavant-000217

PATIENT
  Age: 54 Year
  Sex: Female

DRUGS (3)
  1. TAPINAROF [Suspect]
     Active Substance: TAPINAROF
     Indication: Psoriasis
     Route: 061
     Dates: start: 20221006, end: 20221008
  2. Clobetasol scalp solution [Concomitant]
     Indication: Psoriasis
     Route: 061
     Dates: start: 20190118
  3. Clobetasol scalp solution [Concomitant]
     Indication: Psoriasis

REACTIONS (9)
  - Dyspnoea [Unknown]
  - Hypersensitivity [Unknown]
  - Skin irritation [Unknown]
  - Throat tightness [Unknown]
  - Swelling of eyelid [Unknown]
  - Dermatitis contact [Not Recovered/Not Resolved]
  - Urticaria [Not Recovered/Not Resolved]
  - Eye pruritus [Unknown]
  - Rash [Unknown]

NARRATIVE: CASE EVENT DATE: 20221008
